FAERS Safety Report 7771229-X (Version None)
Quarter: 2011Q3

REPORT INFORMATION
  Report Type: 
  Country: None (occurrence: None)
  Receive Date: 20110922
  Receipt Date: 20101213
  Transmission Date: 20111222
  Serious: No
  Sender: FDA-Public Use
  Company Number: US-ASTRAZENECA-2010SE58928

PATIENT
  Age: 53 Year
  Sex: Male
  Weight: 70.3 kg

DRUGS (7)
  1. FIBROFENATE [Concomitant]
     Indication: HYPERCHOLESTEROLAEMIA
  2. SIMVASTATIN [Concomitant]
     Indication: HYPERCHOLESTEROLAEMIA
  3. ZOLOFT [Concomitant]
  4. SEROQUEL [Suspect]
     Route: 048
     Dates: start: 20101006
  5. SEROQUEL [Suspect]
     Indication: BIPOLAR DISORDER
     Route: 048
     Dates: start: 20080101
  6. SEROQUEL [Suspect]
     Route: 048
     Dates: end: 20101006
  7. DIAZEPAM [Concomitant]

REACTIONS (2)
  - IMPAIRED WORK ABILITY [None]
  - FATIGUE [None]
